FAERS Safety Report 24716394 (Version 1)
Quarter: 2024Q4

REPORT INFORMATION
  Report Type: Spontaneous
  Country: JP (occurrence: JP)
  Receive Date: 20241210
  Receipt Date: 20241210
  Transmission Date: 20250114
  Serious: Yes (Hospitalization, Other)
  Sender: ASTELLAS
  Company Number: JP-ASTELLAS-2024-AER-022861

PATIENT
  Age: 55 Year
  Sex: Male

DRUGS (1)
  1. VESICARE [Suspect]
     Active Substance: SOLIFENACIN SUCCINATE
     Indication: Pollakiuria
     Route: 048

REACTIONS (8)
  - Decreased activity [Unknown]
  - Diabetes mellitus [Unknown]
  - Renal impairment [Unknown]
  - Hepatic function abnormal [Unknown]
  - Benign prostatic hyperplasia [Unknown]
  - Nocturia [Unknown]
  - Dysuria [Unknown]
  - Drug ineffective [Unknown]
